FAERS Safety Report 8491025-8 (Version None)
Quarter: 2012Q3

REPORT INFORMATION
  Report Type: 
  Country: None (occurrence: None)
  Receive Date: 20120706
  Receipt Date: 20120629
  Transmission Date: 20120928
  Serious: Yes (Hospitalization)
  Sender: FDA-Public Use
  Company Number: US-BAYER-2011-061807

PATIENT
  Age: 17 Year
  Sex: Female
  Weight: 62.585 kg

DRUGS (3)
  1. EXCEDRIN (MIGRAINE) [Concomitant]
     Indication: HEADACHE
     Dosage: UNK
     Route: 048
     Dates: start: 20090208
  2. YAZ [Suspect]
     Indication: CONTRACEPTION
     Dosage: UNK
     Dates: start: 20080401, end: 20090201
  3. DARVOCET [Concomitant]
     Route: 048

REACTIONS (6)
  - EMOTIONAL DISTRESS [None]
  - INJURY [None]
  - ANXIETY [None]
  - CEREBROVASCULAR ACCIDENT [None]
  - PAIN [None]
  - GENERAL PHYSICAL HEALTH DETERIORATION [None]
